FAERS Safety Report 13537705 (Version 4)
Quarter: 2017Q4

REPORT INFORMATION
  Report Type: Report from Study
  Country: US (occurrence: US)
  Receive Date: 20170511
  Receipt Date: 20171107
  Transmission Date: 20180320
  Serious: Yes (Other)
  Sender: FDA-Public Use
  Company Number: US-ACTELION-A-NJ2014-108035

PATIENT
  Age: 27 Year
  Sex: Female

DRUGS (23)
  1. OPSUMIT [Suspect]
     Active Substance: MACITENTAN
     Indication: PULMONARY HYPERTENSION
     Dosage: 10 MG, QD
     Route: 048
     Dates: start: 20140821
  2. BACTRIM [Concomitant]
     Active Substance: SULFAMETHOXAZOLE\TRIMETHOPRIM
     Dosage: 800-160, M, W, F
     Route: 048
  3. LASIX [Concomitant]
     Active Substance: FUROSEMIDE
  4. NORCO [Concomitant]
     Active Substance: ACETAMINOPHEN\HYDROCODONE BITARTRATE
     Dosage: 5/325
     Route: 048
  5. VITAMIN D [Concomitant]
     Active Substance: CHOLECALCIFEROL
  6. ULTRAM [Concomitant]
     Active Substance: TRAMADOL HYDROCHLORIDE
     Dosage: 50 MG, Q4HRS
     Route: 048
  7. AZATHIOPRINE. [Suspect]
     Active Substance: AZATHIOPRINE
     Indication: PRODUCT USED FOR UNKNOWN INDICATION
     Route: 065
  8. ADCIRCA [Concomitant]
     Active Substance: TADALAFIL
     Dosage: 20 MG, QD, 2 TABLETS IN AM
     Dates: start: 20140728, end: 2016
  9. METFORMIN HCL [Concomitant]
     Active Substance: METFORMIN HYDROCHLORIDE
     Dosage: 1000 MG, TID
  10. TACROLIMUS. [Concomitant]
     Active Substance: TACROLIMUS
     Dosage: 1 MG, Q12HRS
  11. ADCIRCA [Concomitant]
     Active Substance: TADALAFIL
     Dosage: UNK
     Dates: start: 20160812
  12. LODINE [Concomitant]
     Active Substance: ETODOLAC
     Dosage: 300 MG, TID
     Route: 048
  13. HUMULIN R [Concomitant]
     Active Substance: INSULIN HUMAN
     Dosage: 100 U/ML, UNK
  14. GLIMEPIRIDE. [Concomitant]
     Active Substance: GLIMEPIRIDE
  15. POTASSIUM [Concomitant]
     Active Substance: POTASSIUM
  16. OSCAL 250+D [Concomitant]
     Dosage: 250 - 125, 2 TABLETS
     Route: 048
  17. POTASSIUM CHLORIDE W/SODIUM CHLORIDE [Concomitant]
     Active Substance: POTASSIUM CHLORIDE\SODIUM CHLORIDE
     Dosage: 10 MEQ, UNK
     Route: 048
  18. SILDENAFIL. [Concomitant]
     Active Substance: SILDENAFIL
  19. CELLCEPT [Concomitant]
     Active Substance: MYCOPHENOLATE MOFETIL\MYCOPHENOLATE MOFETIL HYDROCHLORIDE
     Dosage: 500 MG, BID
     Route: 048
  20. SPIRONOLACTONE. [Concomitant]
     Active Substance: SPIRONOLACTONE
     Dosage: 75 MG, QD
     Route: 048
  21. PROAIR HFA [Concomitant]
     Active Substance: ALBUTEROL SULFATE
     Indication: WHEEZING
     Dosage: 2 PUFFS, Q6HRS
  22. PANTOPRAZOLE SODIUM. [Concomitant]
     Active Substance: PANTOPRAZOLE SODIUM
  23. LANTUS [Concomitant]
     Active Substance: INSULIN GLARGINE
     Dosage: 100 U/ML, UNK
     Route: 058

REACTIONS (23)
  - Cholecystectomy [Unknown]
  - Drug hypersensitivity [Not Recovered/Not Resolved]
  - Drug dose omission [Not Recovered/Not Resolved]
  - Ovarian cyst [Unknown]
  - Swelling [Unknown]
  - Flushing [Unknown]
  - Blood alkaline phosphatase increased [Not Recovered/Not Resolved]
  - Dyspnoea exertional [Unknown]
  - Hepatic steatosis [Unknown]
  - Lymphadenopathy [Unknown]
  - Chest pain [Unknown]
  - Abdominal pain upper [Unknown]
  - Thyroid mass [Unknown]
  - Dizziness [Unknown]
  - Dyspnoea [Unknown]
  - Sinus tachycardia [Unknown]
  - Presyncope [Unknown]
  - Autoimmune hepatitis [Unknown]
  - Pulmonary mass [Unknown]
  - Hepatic enzyme increased [Not Recovered/Not Resolved]
  - Memory impairment [Not Recovered/Not Resolved]
  - Biopsy liver [Unknown]
  - Aspartate aminotransferase increased [Not Recovered/Not Resolved]

NARRATIVE: CASE EVENT DATE: 201410
